FAERS Safety Report 9419703 (Version 1)
Quarter: 2013Q3

REPORT INFORMATION
  Report Type: Spontaneous
  Country: DE (occurrence: FR)
  Receive Date: 20130725
  Receipt Date: 20130725
  Transmission Date: 20140515
  Serious: Yes (Hospitalization)
  Sender: FDA-Public Use
  Company Number: FR-FRI-1000047013

PATIENT
  Age: 69 Year
  Sex: Male

DRUGS (12)
  1. ROFLUMILAST [Suspect]
     Indication: CHRONIC OBSTRUCTIVE PULMONARY DISEASE
     Dates: start: 2011
  2. KARGEDIC [Concomitant]
     Dosage: 1 DF
  3. PLAVIX [Concomitant]
     Dosage: 75 MG
  4. CRESTOR [Concomitant]
     Dosage: 10 MG
  5. NEBILOX [Concomitant]
     Dosage: 5 MG
  6. TRIATEC [Concomitant]
     Dosage: 2.5 MG
  7. CORVASAL [Concomitant]
     Dosage: 8 MG
  8. SPIRIVA [Concomitant]
     Dosage: 1 DF
     Route: 055
  9. INNOVAIR [Concomitant]
     Dosage: 4 DF
  10. LORAZEPAM [Concomitant]
     Dosage: 2.5 MG
  11. TARDYFERON [Concomitant]
     Dosage: 80 MG
  12. VITAMIN B12 [Concomitant]
     Dosage: 3 DF

REACTIONS (1)
  - Plasma cell myeloma [Unknown]
